FAERS Safety Report 4664329-4 (Version None)
Quarter: 2005Q2

REPORT INFORMATION
  Report Type: 
  Country: None (occurrence: None)
  Receive Date: 20050518
  Receipt Date: 20050422
  Transmission Date: 20051028
  Serious: Yes (Disabling, Other)
  Sender: FDA-Public Use
  Company Number: GB-BRISTOL-MYERS SQUIBB COMPANY-12948212

PATIENT
  Age: 25 Year
  Sex: Female

DRUGS (4)
  1. ABILIFY [Suspect]
     Indication: PSYCHOTIC DISORDER
     Dosage: 15 MG/DAY 16-MAR-05; REDUCED TO 10 MG/DAY
     Route: 048
     Dates: start: 20050316
  2. ESCITALOPRAM [Interacting]
     Indication: DEPRESSION
     Route: 048
     Dates: start: 20050410
  3. AMISULPRIDE [Concomitant]
     Indication: PSYCHOTIC DISORDER
     Route: 048
     Dates: start: 20041201, end: 20050101
  4. CONTRACEPTIVE [Concomitant]
     Route: 048
     Dates: start: 20040101

REACTIONS (6)
  - DEPRESSION [None]
  - DRUG INTERACTION [None]
  - GAIT DISTURBANCE [None]
  - MOVEMENT DISORDER [None]
  - MUSCLE RIGIDITY [None]
  - TREMOR [None]
